FAERS Safety Report 17430065 (Version 3)
Quarter: 2022Q1

REPORT INFORMATION
  Report Type: Spontaneous
  Country: US (occurrence: US)
  Receive Date: 20200218
  Receipt Date: 20220218
  Transmission Date: 20220423
  Serious: No
  Sender: FDA-Public Use
  Company Number: US-PFIZER INC-2020068080

PATIENT
  Age: 68 Year
  Sex: Female

DRUGS (2)
  1. METHOTREXATE SODIUM [Suspect]
     Active Substance: METHOTREXATE SODIUM
     Dosage: 17.5 MG, WEEKLY (METHOTREXATE TO 17.5 MG SQ WEEKLY)
     Route: 058
  2. METHOTREXATE SODIUM [Suspect]
     Active Substance: METHOTREXATE SODIUM
     Dosage: 0.7 ML, WEEKLY (METHOTREXATE SODIUM 50 MG/2ML SOLUTION INJECT 0.7 ML SUBCUTANEOUSLY ONCE A WEEK.)
     Route: 058

REACTIONS (2)
  - Drug hypersensitivity [Unknown]
  - Gastrointestinal disorder [Unknown]
